FAERS Safety Report 6194953-1 (Version None)
Quarter: 2009Q2

REPORT INFORMATION
  Report Type: 
  Country: None (occurrence: None)
  Receive Date: 20090519
  Receipt Date: 20090514
  Transmission Date: 20091009
  Serious: No
  Sender: FDA-Public Use
  Company Number: US-B.I. PHARMACEUTICALS,INC./RIDGEFIELD-2009-BP-06060BP

PATIENT
  Sex: Female

DRUGS (9)
  1. SPIRIVA [Suspect]
     Indication: CHRONIC OBSTRUCTIVE PULMONARY DISEASE
     Dosage: 18MCG
     Route: 055
     Dates: start: 20090513, end: 20090514
  2. THEOPHYLLINE [Concomitant]
     Indication: LUNG DISORDER
     Dates: start: 19270101
  3. ALDACTONE [Concomitant]
     Indication: HYPERTENSION
  4. LISINOPRIL [Concomitant]
     Indication: HYPERTENSION
  5. SYNTHROID [Concomitant]
     Indication: HYPOTHYROIDISM
     Dates: start: 19270101
  6. MUCINEX [Concomitant]
     Indication: LUNG DISORDER
  7. PHENERGAN [Concomitant]
     Indication: NAUSEA
     Dates: start: 19270101
  8. PHENERGAN [Concomitant]
     Indication: VOMITING
  9. BENADRYL [Concomitant]
     Indication: SEASONAL ALLERGY
     Dates: start: 19280101

REACTIONS (2)
  - ASTHENIA [None]
  - DISORIENTATION [None]
